FAERS Safety Report 6775248-1 (Version None)
Quarter: 2010Q2

REPORT INFORMATION
  Report Type: 
  Country: None (occurrence: None)
  Receive Date: 20100615
  Receipt Date: 20100615
  Transmission Date: 20101027
  Serious: Yes (Hospitalization)
  Sender: FDA-Public Use
  Company Number: None

PATIENT
  Age: 77 Year
  Sex: Male
  Weight: 98.8 kg

DRUGS (11)
  1. SEROQUEL [Suspect]
     Indication: POST-TRAUMATIC STRESS DISORDER
     Dosage: 50MG PO QHS ; 25MG PO QHS
     Route: 048
     Dates: start: 20070117, end: 20070410
  2. SEROQUEL [Suspect]
     Indication: POST-TRAUMATIC STRESS DISORDER
     Dosage: 50MG PO QHS ; 25MG PO QHS
     Route: 048
     Dates: start: 20070410
  3. ASPIRIN [Concomitant]
  4. HCTZ [Concomitant]
  5. LISINOPRIL [Concomitant]
  6. METRONIDAZOLE CREAM [Concomitant]
  7. NAPROXEN [Concomitant]
  8. TRAZODONE HYDROCHLORIDE [Concomitant]
  9. VARDENAFIL [Concomitant]
  10. VENLAFAXINE [Concomitant]
  11. OXYBUTYNIN CHLORIDE [Concomitant]

REACTIONS (6)
  - CHEST PAIN [None]
  - DEEP VEIN THROMBOSIS [None]
  - DIZZINESS [None]
  - ORTHOSTATIC HYPOTENSION [None]
  - PRESYNCOPE [None]
  - VISION BLURRED [None]
